FAERS Safety Report 5898644-3 (Version None)
Quarter: 2008Q3

REPORT INFORMATION
  Report Type: 
  Country: None (occurrence: None)
  Receive Date: 20080925
  Receipt Date: 20080312
  Transmission Date: 20090109
  Serious: No
  Sender: FDA-Public Use
  Company Number: A0714985A

PATIENT
  Age: 36 Year
  Sex: Female

DRUGS (2)
  1. WELLBUTRIN XL [Suspect]
     Indication: DEPRESSION
     Dosage: 300MG PER DAY
     Route: 048
     Dates: start: 20070201, end: 20071001
  2. NO CONCURRENT MEDICATION [Concomitant]

REACTIONS (3)
  - ALOPECIA [None]
  - DECREASED APPETITE [None]
  - WEIGHT DECREASED [None]
